FAERS Safety Report 6787898-7 (Version None)
Quarter: 2010Q2

REPORT INFORMATION
  Report Type: 
  Country: None (occurrence: None)
  Receive Date: 20100623
  Receipt Date: 20071003
  Transmission Date: 20101027
  Serious: Yes (Other)
  Sender: FDA-Public Use
  Company Number: US-PFIZER INC-2007084138

PATIENT
  Sex: Female

DRUGS (2)
  1. GEODON [Suspect]
     Route: 030
  2. BENADRYL [Concomitant]

REACTIONS (2)
  - EXTRAPYRAMIDAL DISORDER [None]
  - HYPERSENSITIVITY [None]
